FAERS Safety Report 8610888-6 (Version None)
Quarter: 2012Q3

REPORT INFORMATION
  Report Type: 
  Country: None (occurrence: None)
  Receive Date: 20120822
  Receipt Date: 20120807
  Transmission Date: 20120928
  Serious: Yes (Hospitalization)
  Sender: FDA-Public Use
  Company Number: DE-UCBSA-063560

PATIENT
  Sex: Female

DRUGS (2)
  1. RITUXIMAB [Concomitant]
     Dosage: DOSE: 1000 MG
     Dates: start: 20080714
  2. CERTOLIZUMAB [Suspect]
     Indication: RHEUMATOID ARTHRITIS
     Dosage: DOSE:200 MG
     Route: 058
     Dates: start: 20091101

REACTIONS (1)
  - RENAL FAILURE [None]
